FAERS Safety Report 17218174 (Version 1)
Quarter: 2019Q4

REPORT INFORMATION
  Report Type: Spontaneous
  Country: US (occurrence: US)
  Receive Date: 20191207
  Receipt Date: 20191207
  Transmission Date: 20200122
  Serious: No
  Sender: FDA-Public Use
  Company Number: None

PATIENT
  Age: 31 Year
  Sex: Female

DRUGS (2)
  1. XELODA [Concomitant]
     Active Substance: CAPECITABINE
  2. TEMODAR [Suspect]
     Active Substance: TEMOZOLOMIDE
     Route: 048
     Dates: start: 2019

REACTIONS (1)
  - Oral herpes [None]

NARRATIVE: CASE EVENT DATE: 20191207
